FAERS Safety Report 10452737 (Version 1)
Quarter: 2014Q3

REPORT INFORMATION
  Report Type: Spontaneous
  Country: US (occurrence: None)
  Receive Date: 20140912
  Receipt Date: 20140912
  Transmission Date: 20150326
  Serious: Yes (Hospitalization)
  Sender: FDA-Public Use
  Company Number: None

PATIENT
  Age: 63 Year
  Sex: Male
  Weight: 73.4 kg

DRUGS (2)
  1. LENALIDOMIDE [Suspect]
     Active Substance: LENALIDOMIDE
  2. RITUXIMAB (MOAB C2B8 ANTI CD20, CHIMERIC) [Suspect]
     Active Substance: RITUXIMAB

REACTIONS (7)
  - Bronchitis chronic [None]
  - Bronchiolitis [None]
  - Sputum discoloured [None]
  - Adverse event [None]
  - Hypoaesthesia [None]
  - Chronic obstructive pulmonary disease [None]
  - Sinus tachycardia [None]

NARRATIVE: CASE EVENT DATE: 20140910
